FAERS Safety Report 9292894 (Version 1)
Quarter: 2013Q2

REPORT INFORMATION
  Report Type: Spontaneous
  Country: US (occurrence: None)
  Receive Date: 20130515
  Receipt Date: 20130515
  Transmission Date: 20140414
  Serious: No
  Sender: FDA-Public Use
  Company Number: None

PATIENT
  Age: 81 Year
  Sex: Female
  Weight: 87.54 kg

DRUGS (1)
  1. VIIBRYD [Suspect]
     Route: 048

REACTIONS (3)
  - Anxiety [None]
  - Crying [None]
  - Headache [None]
